FAERS Safety Report 10428125 (Version 1)
Quarter: 2014Q3

REPORT INFORMATION
  Report Type: Spontaneous
  Country: FR (occurrence: FR)
  Receive Date: 20140903
  Receipt Date: 20140903
  Transmission Date: 20150326
  Serious: Yes (Hospitalization)
  Sender: FDA-Public Use
  Company Number: FR-DSJP-DSE-2014-120304

PATIENT

DRUGS (1)
  1. AXELER [Suspect]
     Active Substance: AMLODIPINE BESYLATE\OLMESARTAN MEDOXOMIL
     Indication: PRODUCT USED FOR UNKNOWN INDICATION
     Route: 048
     Dates: end: 201402

REACTIONS (4)
  - Prerenal failure [Recovered/Resolved]
  - Enterocolitis [Recovered/Resolved]
  - Gastrointestinal disorder [Recovered/Resolved]
  - Intestinal villi atrophy [Recovered/Resolved]

NARRATIVE: CASE EVENT DATE: 2014
